FAERS Safety Report 4454932-9 (Version None)
Quarter: 2004Q3

REPORT INFORMATION
  Report Type: 
  Country: None (occurrence: None)
  Receive Date: 20040921
  Receipt Date: 20040909
  Transmission Date: 20050211
  Serious: Yes (Death)
  Sender: FDA-Public Use
  Company Number: DE-ROCHE-380206

PATIENT
  Age: 53 Year
  Sex: Male

DRUGS (12)
  1. DACLIZUMAB [Suspect]
     Route: 065
  2. MYCOPHENOLATE MOFETIL [Suspect]
     Route: 065
  3. TACROLIMUS [Suspect]
     Route: 065
  4. CORTICOSTEROIDS [Suspect]
     Route: 065
  5. CATECHOLAMINE NOS [Concomitant]
  6. NOREPINEPHRINE BITARTRATE [Concomitant]
  7. ANTIBIOTICS [Concomitant]
  8. MERONEM [Concomitant]
  9. CIPROBAY [Concomitant]
  10. VFEND [Concomitant]
  11. INSULIN [Concomitant]
  12. SUFENTANIL [Concomitant]

REACTIONS (2)
  - MULTI-ORGAN FAILURE [None]
  - PANCREATITIS NECROTISING [None]
